FAERS Safety Report 12065764 (Version 1)
Quarter: 2016Q1

REPORT INFORMATION
  Report Type: Spontaneous
  Country: US (occurrence: US)
  Receive Date: 20160211
  Receipt Date: 20160211
  Transmission Date: 20160526
  Serious: No
  Sender: FDA-Public Use
  Company Number: US-PFIZER INC-2016043046

PATIENT
  Age: 30 Year
  Sex: Female
  Weight: 48 kg

DRUGS (3)
  1. ADVIL [Suspect]
     Active Substance: IBUPROFEN
     Indication: PARANASAL SINUS DISCOMFORT
     Dosage: 1 CAPSULE, IF THE HEADACHE DOES NOT GO AWAY WITHIN 1-2 HOURS WOULD TAKE THE SECOND ONE
     Dates: end: 20160113
  2. ADVIL [Suspect]
     Active Substance: IBUPROFEN
     Indication: HYPERSENSITIVITY
  3. ADVIL [Suspect]
     Active Substance: IBUPROFEN
     Indication: HEADACHE

REACTIONS (3)
  - Intentional product misuse [Unknown]
  - Nausea [Recovered/Resolved]
  - Vomiting [Recovered/Resolved]

NARRATIVE: CASE EVENT DATE: 201511
